FAERS Safety Report 15795254 (Version 1)
Quarter: 2019Q1

REPORT INFORMATION
  Report Type: Spontaneous
  Country: US (occurrence: US)
  Receive Date: 20190107
  Receipt Date: 20190107
  Transmission Date: 20190417
  Serious: Yes (Other)
  Sender: FDA-Public Use
  Company Number: None

PATIENT
  Age: 21 Year
  Sex: Male
  Weight: 74 kg

DRUGS (2)
  1. MONTAIR FX [Suspect]
     Active Substance: FEXOFENADINE\MONTELUKAST
     Indication: OTITIS MEDIA
  2. OLMESARTAN [Concomitant]
     Active Substance: OLMESARTAN

REACTIONS (3)
  - Confusional state [None]
  - Disorientation [None]
  - Amnesia [None]
